FAERS Safety Report 5811352-X (Version None)
Quarter: 2008Q3

REPORT INFORMATION
  Report Type: 
  Country: None (occurrence: None)
  Receive Date: 20080710
  Receipt Date: 20080627
  Transmission Date: 20090109
  Serious: Yes (Hospitalization, Other)
  Sender: FDA-Public Use
  Company Number: 2008000977

PATIENT
  Age: 69 Year
  Sex: Male

DRUGS (10)
  1. ERLOTINIB (ERLOTINIB HCL) (TABLET) (ERLOTINIB HCL) [Suspect]
     Indication: LUNG SQUAMOUS CELL CARCINOMA STAGE UNSPECIFIED
     Dosage: (150 NG, QD), ORAL
     Route: 048
     Dates: start: 20080321, end: 20080402
  2. CEFTRIAXONE (CEFTRIAXONE) (INJECTION FOR INFUSION) [Suspect]
     Indication: LUNG SQUAMOUS CELL CARCINOMA STAGE UNSPECIFIED
     Dosage: 2 GM, QD), INTRAVENOUS
     Route: 042
     Dates: start: 20080402
  3. LOXONIN (LOXOPROFEN SODIUM) [Concomitant]
  4. FAMOTIDINE [Concomitant]
  5. LENDORM [Concomitant]
  6. FUNGIZONE [Concomitant]
  7. DECADRON [Concomitant]
  8. ROCEPHIN [Concomitant]
  9. RISPERDAL [Concomitant]
  10. GRAMALIL (TIAPRIDE HYDROCHLORIDE) [Concomitant]

REACTIONS (5)
  - CATHETER RELATED INFECTION [None]
  - DISEASE PROGRESSION [None]
  - ERYTHEMA MULTIFORME [None]
  - HEPATIC FUNCTION ABNORMAL [None]
  - HERPES VIRUS INFECTION [None]
